FAERS Safety Report 7349421-8 (Version None)
Quarter: 2011Q1

REPORT INFORMATION
  Report Type: 
  Country: None (occurrence: None)
  Receive Date: 20110314
  Receipt Date: 20100720
  Transmission Date: 20110831
  Serious: No
  Sender: FDA-Public Use
  Company Number: US-ABBOTT-10P-163-0659735-00

PATIENT
  Sex: Female
  Weight: 88.53 kg

DRUGS (5)
  1. UNKNOWN NASAL SPRAY [Concomitant]
     Indication: PRODUCT USED FOR UNKNOWN INDICATION
     Route: 045
  2. ADVAIR DISKUS 100/50 [Concomitant]
     Indication: PRODUCT USED FOR UNKNOWN INDICATION
  3. ALBUTEROL [Concomitant]
     Indication: PRODUCT USED FOR UNKNOWN INDICATION
  4. DEPAKOTE [Suspect]
     Indication: BIPOLAR DISORDER
     Route: 048
     Dates: start: 20040101, end: 20060101
  5. DEPAKOTE [Suspect]
     Indication: DEPRESSION

REACTIONS (6)
  - JUDGEMENT IMPAIRED [None]
  - MOOD SWINGS [None]
  - DEPRESSION [None]
  - HYPERSOMNIA [None]
  - WEIGHT INCREASED [None]
  - SENSORY DISTURBANCE [None]
